FAERS Safety Report 10514324 (Version 1)
Quarter: 2014Q4

REPORT INFORMATION
  Report Type: Spontaneous
  Country: FR (occurrence: FR)
  Receive Date: 20141013
  Receipt Date: 20141013
  Transmission Date: 20150528
  Serious: Yes (Hospitalization)
  Sender: FDA-Public Use
  Company Number: FR-BRISTOL-MYERS SQUIBB COMPANY-21462031

PATIENT
  Age: 87 Year
  Sex: Female

DRUGS (9)
  1. ALLOPURINOL. [Suspect]
     Active Substance: ALLOPURINOL
     Indication: GOUT
     Dosage: LAST DOSE ON: 23MAY14.
     Route: 048
     Dates: start: 20140415, end: 20140523
  2. PREVISCAN [Concomitant]
     Active Substance: FLUINDIONE
  3. APROVEL [Concomitant]
     Active Substance: IRBESARTAN
  4. ELISOR TABS 20 MG [Suspect]
     Active Substance: PRAVASTATIN SODIUM
     Indication: DYSLIPIDAEMIA
     Dosage: LAST DOSE ON: 31MAY14.
     Route: 048
     Dates: end: 20140531
  5. COLCHIMAX [Suspect]
     Active Substance: COLCHICINE\DICYCLOMINE HYDROCHLORIDE
     Indication: GOUT
     Dosage: LAST DOSE ON: 04MAY14.
     Route: 048
     Dates: start: 20140326, end: 20140504
  6. FUROSEMIDE. [Concomitant]
     Active Substance: FUROSEMIDE
  7. EPINITRIL [Concomitant]
     Active Substance: NITROGLYCERIN
  8. CARDENSIEL [Concomitant]
     Active Substance: BISOPROLOL FUMARATE
  9. EFFERALGAN [Concomitant]
     Active Substance: ACETAMINOPHEN

REACTIONS (3)
  - Rash maculo-papular [Recovered/Resolved]
  - Cheilitis [Recovered/Resolved]
  - Oral mucosa erosion [Recovered/Resolved]

NARRATIVE: CASE EVENT DATE: 20140522
